FAERS Safety Report 23857408 (Version 2)
Quarter: 2024Q2

REPORT INFORMATION
  Report Type: Spontaneous
  Country: CA (occurrence: CA)
  Receive Date: 20240515
  Receipt Date: 20240518
  Transmission Date: 20240716
  Serious: Yes (Other)
  Sender: FDA-Public Use
  Company Number: None

PATIENT
  Age: 70 Year
  Sex: Male
  Weight: 56 kg

DRUGS (13)
  1. OXALIPLATIN [Suspect]
     Active Substance: OXALIPLATIN
     Indication: Adenocarcinoma of colon
     Dosage: 1 EVERY 14 DAYS
     Route: 042
  2. ATORVASTATIN [Concomitant]
     Active Substance: ATORVASTATIN
     Route: 065
  3. BISOPROLOL [Concomitant]
     Active Substance: BISOPROLOL\BISOPROLOL FUMARATE
     Route: 065
  4. DEXAMETHASONE [Concomitant]
     Active Substance: DEXAMETHASONE
     Route: 065
  5. FLUOROURACIL [Concomitant]
     Active Substance: FLUOROURACIL
  6. LEUCOVORIN [Concomitant]
     Active Substance: LEUCOVORIN\LEUCOVORIN CALCIUM
  7. METRONIDAZOLE [Concomitant]
     Active Substance: METRONIDAZOLE
  8. MONTELUKAST [Concomitant]
     Active Substance: MONTELUKAST SODIUM
  9. ONDANSETRON [Concomitant]
     Active Substance: ONDANSETRON
  10. PANTOPRAZOLE [Concomitant]
     Active Substance: PANTOPRAZOLE
  11. PERINDOPRIL [Concomitant]
     Active Substance: PERINDOPRIL
  12. SUCRALFATE [Concomitant]
     Active Substance: SUCRALFATE
  13. LEUCOVORIN [Concomitant]
     Active Substance: LEUCOVORIN\LEUCOVORIN CALCIUM

REACTIONS (5)
  - Agitation [Recovered/Resolved]
  - Muscle spasms [Recovered/Resolved]
  - Dyskinesia [Recovered/Resolved]
  - Neuropathy peripheral [Recovered/Resolved]
  - Thrombocytopenia [Recovered/Resolved]
